FAERS Safety Report 8491037-4 (Version None)
Quarter: 2012Q3

REPORT INFORMATION
  Report Type: 
  Country: None (occurrence: None)
  Receive Date: 20120706
  Receipt Date: 20120625
  Transmission Date: 20120928
  Serious: Yes (Other)
  Sender: FDA-Public Use
  Company Number: US-ELI_LILLY_AND_COMPANY-US201101002495

PATIENT
  Sex: Female

DRUGS (15)
  1. VITAMIN D [Concomitant]
  2. OMEPRAZOLE [Concomitant]
  3. FORTEO [Suspect]
     Dosage: 20 UG, QD
     Route: 065
  4. CALCIUM CARBONATE [Concomitant]
  5. SUCRALFATE [Concomitant]
  6. FORTEO [Suspect]
     Indication: OSTEOPOROSIS
     Dosage: 20 UG, QD
     Route: 065
  7. LISINOPRIL [Concomitant]
     Dosage: UNK, QD
  8. ASPIRIN [Concomitant]
     Dosage: 81 MG, QD
  9. JANUMET [Concomitant]
     Dosage: UNK, BID
  10. GABAPENTIN [Concomitant]
     Dosage: UNK, TID
  11. FORTEO [Suspect]
     Dosage: 20 UG, QD
     Route: 065
  12. CRESTOR [Concomitant]
     Dosage: UNK, QD
  13. PLAVIX [Concomitant]
     Dosage: UNK, QD
  14. FORTEO [Suspect]
     Dosage: 20 UG, QD
     Route: 065
  15. GLIPIZIDE [Concomitant]

REACTIONS (9)
  - FALL [None]
  - ABDOMINAL PAIN UPPER [None]
  - BONE DENSITY DECREASED [None]
  - DYSPNOEA [None]
  - CHOLECYSTECTOMY [None]
  - MUSCULOSKELETAL PAIN [None]
  - CRYPTOGENIC CIRRHOSIS [None]
  - ABDOMINAL DISTENSION [None]
  - NASOPHARYNGITIS [None]
